FAERS Safety Report 12133861 (Version 1)
Quarter: 2016Q1

REPORT INFORMATION
  Report Type: Spontaneous
  Country: CH (occurrence: CH)
  Receive Date: 20160301
  Receipt Date: 20160301
  Transmission Date: 20160526
  Serious: Yes (Other)
  Sender: FDA-Public Use
  Company Number: CH-PFIZER INC-2016114154

PATIENT
  Age: 11 Year
  Sex: Female
  Weight: 27.7 kg

DRUGS (12)
  1. MORPHINE [Concomitant]
     Active Substance: MORPHINE
     Dosage: UNK
     Route: 048
     Dates: start: 20160121
  2. ZOFRAN [Concomitant]
     Active Substance: ONDANSETRON HYDROCHLORIDE
     Dosage: UNK
     Route: 048
     Dates: start: 20160121
  3. AMIKACIN [Concomitant]
     Active Substance: AMIKACIN
     Dosage: 800 MG, 1X/DAY
     Route: 041
     Dates: start: 20160121
  4. MOXIFLOXACIN. [Concomitant]
     Active Substance: MOXIFLOXACIN
     Indication: MYCOBACTERIUM ABSCESSUS INFECTION
     Dosage: UNK
     Route: 048
     Dates: start: 20150930, end: 20160120
  5. AZITHROMYCIN ANHYDROUS. [Concomitant]
     Active Substance: AZITHROMYCIN ANHYDROUS
     Indication: MYCOBACTERIUM ABSCESSUS INFECTION
     Dosage: 250 MG, UNK
     Route: 048
     Dates: start: 20150508
  6. MOTILIUM [Concomitant]
     Active Substance: DOMPERIDONE
     Dosage: UNK
     Route: 048
     Dates: start: 20160121
  7. CLOFAZIMINE [Concomitant]
     Active Substance: CLOFAZIMINE
     Indication: MYCOBACTERIUM ABSCESSUS INFECTION
     Dosage: 50 MG, ALTERNATE DAY
     Route: 048
     Dates: start: 20150828
  8. AMIKACIN [Concomitant]
     Active Substance: AMIKACIN
     Indication: MYCOBACTERIUM ABSCESSUS INFECTION
     Dosage: UNK
     Route: 055
     Dates: start: 20150930, end: 20160120
  9. MEROPENEM. [Concomitant]
     Active Substance: MEROPENEM
     Indication: MYCOBACTERIUM ABSCESSUS INFECTION
     Dosage: 1000 MG, 3X/DAY
     Route: 041
     Dates: start: 20160121
  10. LEVEMIR [Concomitant]
     Active Substance: INSULIN DETEMIR
     Indication: DIABETES MELLITUS
     Dosage: UNK
     Route: 058
     Dates: start: 20160122
  11. DAFALGAN [Concomitant]
     Active Substance: ACETAMINOPHEN
     Indication: PAIN MANAGEMENT
     Dosage: UNK
     Route: 048
     Dates: start: 20160121
  12. TYGACIL [Suspect]
     Active Substance: TIGECYCLINE
     Indication: MYCOBACTERIUM ABSCESSUS INFECTION
     Dosage: 32 MG, 2X/DAY
     Route: 041
     Dates: start: 20160121, end: 20160203

REACTIONS (9)
  - Prothrombin level decreased [Unknown]
  - Coagulation factor V level decreased [Unknown]
  - Coagulation factor IX level decreased [Unknown]
  - Off label use [Recovered/Resolved]
  - Blood fibrinogen decreased [Recovered/Resolved]
  - Coagulopathy [Recovered/Resolved]
  - Activated partial thromboplastin time prolonged [Unknown]
  - Coagulation factor X level decreased [Unknown]
  - Prothrombin time ratio decreased [Recovered/Resolved]

NARRATIVE: CASE EVENT DATE: 20160121
